FAERS Safety Report 23213150 (Version 3)
Quarter: 2023Q4

REPORT INFORMATION
  Report Type: Report from Study
  Country: CN (occurrence: CN)
  Receive Date: 20231121
  Receipt Date: 20231229
  Transmission Date: 20240110
  Serious: Yes (Hospitalization)
  Sender: FDA-Public Use
  Company Number: CN-SUN PHARMACEUTICAL INDUSTRIES LTD-2023R1-418401

PATIENT
  Age: 73 Year
  Sex: Female
  Weight: 67 kg

DRUGS (8)
  1. ODOMZO [Suspect]
     Active Substance: SONIDEGIB
     Indication: Basal cell carcinoma
     Dosage: 200 MILLIGRAM, QD
     Route: 048
     Dates: start: 20230725, end: 20231020
  2. ODOMZO [Suspect]
     Active Substance: SONIDEGIB
     Dosage: 200 MILLIGRAM, QD
     Route: 048
     Dates: start: 20231025, end: 20231104
  3. ODOMZO [Suspect]
     Active Substance: SONIDEGIB
     Dosage: 200 MILLIGRAM, QD
     Route: 048
     Dates: start: 20231105
  4. Chlorine bisulfate gray [Concomitant]
     Indication: Product used for unknown indication
     Dosage: UNK
     Route: 065
  5. CLOPIDOGREL BISULFATE [Concomitant]
     Active Substance: CLOPIDOGREL BISULFATE
     Indication: Thrombosis prophylaxis
     Dosage: 75 MILLIGRAM, TID
     Route: 048
     Dates: start: 202008
  6. Compound Danshen Dropping [Concomitant]
     Indication: Angina pectoris
     Dosage: UNK (10 CAPSULES 3 TIMES A DAY)
     Route: 048
     Dates: start: 202008
  7. NIMODIPINE [Concomitant]
     Active Substance: NIMODIPINE
     Indication: Vascular disorder prophylaxis
     Dosage: 20 MILLIGRAM, TID
     Route: 048
     Dates: start: 202008
  8. ROSUVASTATIN CALCIUM [Concomitant]
     Active Substance: ROSUVASTATIN CALCIUM
     Indication: Hypercholesterolaemia
     Dosage: 10 MILLIGRAM, DAILY
     Route: 048
     Dates: start: 202008, end: 20230707

REACTIONS (5)
  - Large intestine polyp [Recovered/Resolved]
  - Blood creatine phosphokinase increased [Recovered/Resolved]
  - Dysgeusia [Not Recovered/Not Resolved]
  - Myalgia [Not Recovered/Not Resolved]
  - Muscle spasms [Recovered/Resolved]

NARRATIVE: CASE EVENT DATE: 20230927
